FAERS Safety Report 19076633 (Version 3)
Quarter: 2021Q3

REPORT INFORMATION
  Report Type: Spontaneous
  Country: SA (occurrence: PK)
  Receive Date: 20210331
  Receipt Date: 20210812
  Transmission Date: 20211014
  Serious: Yes (Life-Threatening, Hospitalization, Other)
  Sender: FDA-Public Use
  Company Number: SA-LUPIN PHARMACEUTICALS INC.-2021-04030

PATIENT
  Age: 39 Year
  Sex: Female

DRUGS (1)
  1. LEVONORGESTREL TABLET [Suspect]
     Active Substance: LEVONORGESTREL
     Indication: CONTRACEPTION
     Dosage: 2 DOSAGE FORM, SINGLE, (ADMINISTERED TWO TABLETS AT ONCE)
     Route: 048
     Dates: start: 2019, end: 2019

REACTIONS (6)
  - Hypotension [Recovered/Resolved]
  - Ruptured ectopic pregnancy [Recovered/Resolved]
  - Pregnancy on oral contraceptive [Unknown]
  - Ectopic pregnancy under hormonal contraception [Recovered/Resolved]
  - Human chorionic gonadotropin increased [Recovered/Resolved]
  - Exposure during pregnancy [Unknown]

NARRATIVE: CASE EVENT DATE: 2019
